FAERS Safety Report 9036996 (Version 1)
Quarter: 2013Q1

REPORT INFORMATION
  Report Type: Spontaneous
  Country: DK (occurrence: None)
  Receive Date: 20130115
  Receipt Date: 20130115
  Transmission Date: 20140127
  Serious: Yes (Other)
  Sender: FDA-Public Use
  Company Number: 2013MA000148

PATIENT
  Age: 36 Year
  Sex: Male

DRUGS (2)
  1. SERTRALINE HYDROCHLORIDE TABLETS, 100 MG (BASE) (AELLC) (SERTRALINE) [Suspect]
     Route: 048
     Dates: start: 201210
  2. CITALOPRAM [Concomitant]

REACTIONS (3)
  - Libido decreased [None]
  - Affective disorder [None]
  - Decreased activity [None]
